FAERS Safety Report 15612967 (Version 1)
Quarter: 2018Q4

REPORT INFORMATION
  Report Type: Spontaneous
  Country: US (occurrence: US)
  Receive Date: 20181107
  Receipt Date: 20181107
  Transmission Date: 20190205
  Serious: No
  Sender: FDA-Public Use
  Company Number: None

PATIENT
  Age: 58 Year
  Sex: Male
  Weight: 119.29 kg

DRUGS (1)
  1. MAVYRET [Suspect]
     Active Substance: GLECAPREVIR\PIBRENTASVIR
     Indication: CHRONIC HEPATITIS C
     Dosage: TAKE 3 TABLETS BY MOUTH EVERY DAILY WITH FOOD AS DIRECTED?
     Route: 048
     Dates: start: 201810

REACTIONS (2)
  - Headache [None]
  - Dyspepsia [None]
